FAERS Safety Report 5640520-5 (Version None)
Quarter: 2008Q1

REPORT INFORMATION
  Report Type: 
  Country: None (occurrence: None)
  Receive Date: 20080227
  Receipt Date: 20080219
  Transmission Date: 20080703
  Serious: No
  Sender: FDA-Public Use
  Company Number: US-BAXTER-2008BH000922

PATIENT
  Age: 68 Year
  Sex: Female

DRUGS (12)
  1. HEPARIN SODIUM [Suspect]
     Indication: PROPHYLAXIS
     Dosage: DOSE UNIT:UNKNOWN
     Route: 010
  2. ADVAIR DISKUS 100/50 [Concomitant]
     Indication: ASTHMA
     Dosage: DOSE UNIT:UNKNOWN
     Route: 065
  3. AGGRENOX [Concomitant]
     Indication: DRUG USE FOR UNKNOWN INDICATION
     Dosage: DOSE UNIT:UNKNOWN
     Route: 065
  4. CRESTOR [Concomitant]
     Indication: BLOOD CHOLESTEROL INCREASED
     Dosage: DOSE UNIT:UNKNOWN
     Route: 065
  5. GABAPENTIN [Concomitant]
     Indication: NEUROPATHY PERIPHERAL
     Dosage: DOSE UNIT:UNKNOWN
     Route: 065
  6. INSULIN [Concomitant]
     Indication: DIABETES MELLITUS
     Dosage: DOSE UNIT:UNKNOWN
     Route: 065
  7. MICARDIS [Concomitant]
     Indication: HYPERTENSION
     Dosage: DOSE UNIT:UNKNOWN
     Route: 065
  8. NORVASC [Concomitant]
     Indication: HYPERTENSION
     Dosage: DOSE UNIT:UNKNOWN
     Route: 065
  9. SINGULAIR [Concomitant]
     Indication: DRUG USE FOR UNKNOWN INDICATION
     Dosage: DOSE UNIT:UNKNOWN
     Route: 065
  10. SYNTHROID [Concomitant]
     Indication: THYROID DISORDER
     Dosage: DOSE UNIT:UNKNOWN
     Route: 065
  11. RENOGEL [Concomitant]
     Indication: DRUG USE FOR UNKNOWN INDICATION
     Dosage: DOSE UNIT:UNKNOWN
     Route: 065
  12. EPOGEN [Concomitant]
     Indication: DRUG USE FOR UNKNOWN INDICATION
     Dosage: DOSE UNIT:UNKNOWN
     Route: 065

REACTIONS (4)
  - DIZZINESS [None]
  - HYPOTENSION [None]
  - STOMACH DISCOMFORT [None]
  - VOMITING [None]
